FAERS Safety Report 25738625 (Version 1)
Quarter: 2025Q3

REPORT INFORMATION
  Report Type: Spontaneous
  Country: US (occurrence: US)
  Receive Date: 20250829
  Receipt Date: 20250829
  Transmission Date: 20251020
  Serious: No
  Sender: MDD OPERATIONS
  Company Number: US-MDD US Operations-MDD202506-001992

PATIENT
  Age: 69 Year
  Sex: Female

DRUGS (1)
  1. ONAPGO [Suspect]
     Active Substance: APOMORPHINE HYDROCHLORIDE
     Indication: Parkinson^s disease
     Dosage: FOR 16 HOURS
     Route: 058
     Dates: start: 20250602, end: 20250604

REACTIONS (7)
  - Nasal congestion [Unknown]
  - Muscle tightness [Unknown]
  - Asthenia [Recovered/Resolved]
  - Nausea [Unknown]
  - Vomiting [Unknown]
  - Nausea [Recovered/Resolved]
  - Vomiting [Recovered/Resolved]

NARRATIVE: CASE EVENT DATE: 20250601
